FAERS Safety Report 13351287 (Version 1)
Quarter: 2017Q1

REPORT INFORMATION
  Report Type: Other
  Country: US (occurrence: US)
  Receive Date: 20170320
  Receipt Date: 20170320
  Transmission Date: 20170429
  Serious: Yes (Hospitalization, Other)
  Sender: FDA-Public Use
  Company Number: US-ACORDA-ACO_135103_2017

PATIENT
  Age: 71 Year
  Sex: Female

DRUGS (2)
  1. AMPYRA [Suspect]
     Active Substance: DALFAMPRIDINE
     Indication: MULTIPLE SCLEROSIS
     Dosage: 10 MG, Q 12 HRS
     Route: 048
     Dates: start: 20150915
  2. AMPYRA [Suspect]
     Active Substance: DALFAMPRIDINE
     Dosage: 10MG Q12H
     Route: 048
     Dates: start: 20161223, end: 20170215

REACTIONS (6)
  - Loss of consciousness [Recovered/Resolved]
  - Tachycardia [Unknown]
  - Epilepsy [Recovered/Resolved]
  - Loss of consciousness [Recovered/Resolved]
  - Arrhythmia supraventricular [Unknown]
  - Incoherent [Recovered/Resolved]

NARRATIVE: CASE EVENT DATE: 201612
